FAERS Safety Report 15097397 (Version 1)
Quarter: 2018Q3

REPORT INFORMATION
  Report Type: Spontaneous
  Country: US (occurrence: US)
  Receive Date: 20180702
  Receipt Date: 20180702
  Transmission Date: 20181010
  Serious: Yes (Other)
  Sender: FDA-Public Use
  Company Number: US-DSJP-DSU-2017-149505

PATIENT

DRUGS (1)
  1. BENICAR HCT [Suspect]
     Active Substance: HYDROCHLOROTHIAZIDE\OLMESARTAN MEDOXOMIL
     Indication: PRODUCT USED FOR UNKNOWN INDICATION
     Dosage: 40?12.5 MG, QD
     Route: 048
     Dates: start: 20070710, end: 20160601

REACTIONS (10)
  - Sprue-like enteropathy [Recovering/Resolving]
  - Hiatus hernia [Recovered/Resolved]
  - Haemorrhoids [Not Recovered/Not Resolved]
  - Diverticulitis [Recovered/Resolved]
  - Helicobacter infection [Recovered/Resolved]
  - Dizziness [Recovered/Resolved]
  - Large intestine polyp [Recovered/Resolved]
  - Diverticulum intestinal [Recovered/Resolved]
  - Gastrooesophageal reflux disease [Recovered/Resolved]
  - Haemangioma of liver [Recovered/Resolved]

NARRATIVE: CASE EVENT DATE: 2008
